FAERS Safety Report 5719620-7 (Version None)
Quarter: 2008Q2

REPORT INFORMATION
  Report Type: 
  Country: None (occurrence: None)
  Receive Date: 20080428
  Receipt Date: 20080423
  Transmission Date: 20081010
  Serious: Yes (Life-Threatening, Other)
  Sender: FDA-Public Use
  Company Number: US-BRISTOL-MYERS SQUIBB COMPANY-14162382

PATIENT
  Sex: Female

DRUGS (7)
  1. REYATAZ [Suspect]
     Dates: start: 20060101
  2. RITONAVIR [Suspect]
     Dosage: RITONAVIR SOFT GELATIN CAPSULES
     Dates: start: 20060101
  3. LAMIVUDINE + ZIDOVUDINE [Suspect]
     Indication: HIV INFECTION
     Dosage: 1 DOSAGE FORM = 1 TAB.
     Route: 048
     Dates: start: 20060101, end: 20060101
  4. BACTRIM [Suspect]
  5. AZITHROMYCIN [Concomitant]
  6. EFAVIRENZ [Concomitant]
  7. CONTRACEPTIVE [Concomitant]
     Indication: CONTRACEPTION
     Route: 048

REACTIONS (1)
  - HAEMOLYTIC ANAEMIA [None]
